FAERS Safety Report 18891886 (Version 1)
Quarter: 2021Q1

REPORT INFORMATION
  Report Type: Spontaneous
  Country: US (occurrence: US)
  Receive Date: 20210215
  Receipt Date: 20210215
  Transmission Date: 20210420
  Serious: Yes (Life-Threatening, Hospitalization, Other)
  Sender: FDA-Public Use
  Company Number: US-ACCORD-215917

PATIENT
  Age: 57 Year
  Sex: Male

DRUGS (2)
  1. AZATHIOPRINE. [Interacting]
     Active Substance: AZATHIOPRINE
     Indication: IMMUNOSUPPRESSION
     Dosage: DAILY, 125 MG DOSING HAD BEEN REDUCED
  2. ALLOPURINOL. [Suspect]
     Active Substance: ALLOPURINOL
     Indication: GOUT
     Dosage: 100 MG TAKING DOUBLE HIS PRESCRIBED DOSE

REACTIONS (6)
  - Oedema peripheral [Recovered/Resolved]
  - Pancytopenia [Recovered/Resolved]
  - Self-medication [Unknown]
  - Extra dose administered [Unknown]
  - Drug interaction [Unknown]
  - Medication error [Unknown]
